FAERS Safety Report 5253335-7 (Version None)
Quarter: 2007Q1

REPORT INFORMATION
  Report Type: 
  Country: None (occurrence: None)
  Receive Date: 20070301
  Receipt Date: 20070223
  Transmission Date: 20070707
  Serious: Yes (Hospitalization)
  Sender: FDA-Public Use
  Company Number: IT-ROCHE-482754

PATIENT
  Age: 82 Year
  Sex: Female

DRUGS (1)
  1. TICLID [Suspect]
     Route: 048
     Dates: start: 20020101, end: 20061218

REACTIONS (3)
  - CEREBRAL HAEMORRHAGE [None]
  - CONFUSIONAL STATE [None]
  - DYSARTHRIA [None]
